FAERS Safety Report 7384323-2 (Version None)
Quarter: 2011Q1

REPORT INFORMATION
  Report Type: 
  Country: None (occurrence: None)
  Receive Date: 20110330
  Receipt Date: 20110316
  Transmission Date: 20110831
  Serious: Yes (Disabling)
  Sender: FDA-Public Use
  Company Number: US-JNJFOC-20110100851

PATIENT
  Sex: Female
  Weight: 54.89 kg

DRUGS (7)
  1. CALCIUM [Concomitant]
  2. INFLIXIMAB, RECOMBINANT [Suspect]
     Indication: PSORIASIS
     Route: 042
  3. CORTICOSTEROIDS, NOS [Concomitant]
     Indication: PSORIASIS
  4. FOSAMAX [Concomitant]
  5. INFLIXIMAB, RECOMBINANT [Suspect]
     Route: 042
  6. PREVACID [Concomitant]
  7. BETAMETHASONE [Concomitant]
     Indication: PSORIASIS

REACTIONS (1)
  - COLON CANCER STAGE III [None]
